FAERS Safety Report 16747458 (Version 1)
Quarter: 2019Q3

REPORT INFORMATION
  Report Type: Report from Study
  Country: US (occurrence: US)
  Receive Date: 20190827
  Receipt Date: 20190827
  Transmission Date: 20191005
  Serious: Yes (Hospitalization, Other)
  Sender: FDA-Public Use
  Company Number: US-GILEAD-2019-0425351

PATIENT
  Age: 68 Year
  Sex: Male

DRUGS (9)
  1. FUROSEMIDE. [Concomitant]
     Active Substance: FUROSEMIDE
  2. FERROUS SULFATE. [Concomitant]
     Active Substance: FERROUS SULFATE
  3. LANTUS [Concomitant]
     Active Substance: INSULIN GLARGINE
  4. LISINOPRIL. [Concomitant]
     Active Substance: LISINOPRIL
  5. NOVOLIN [Concomitant]
     Active Substance: INSULIN HUMAN
  6. AMBRISENTAN [Suspect]
     Active Substance: AMBRISENTAN
     Indication: PULMONARY ARTERIAL HYPERTENSION
     Dosage: 10 MG, QD
     Route: 065
     Dates: start: 20100115
  7. TYVASO [Concomitant]
     Active Substance: TREPROSTINIL
  8. GLYBURIDE. [Concomitant]
     Active Substance: GLYBURIDE
  9. SPIRONOLACTONE. [Concomitant]
     Active Substance: SPIRONOLACTONE

REACTIONS (1)
  - Craniocerebral injury [Recovered/Resolved]

NARRATIVE: CASE EVENT DATE: 201908
